FAERS Safety Report 8331707-1 (Version None)
Quarter: 2012Q2

REPORT INFORMATION
  Report Type: 
  Country: None (occurrence: None)
  Receive Date: 20120502
  Receipt Date: 20110614
  Transmission Date: 20120825
  Serious: No
  Sender: FDA-Public Use
  Company Number: US-ASTRAZENECA-2011SE36264

PATIENT
  Age: 60 Year
  Sex: Female
  Weight: 79.4 kg

DRUGS (1)
  1. ENTOCORT EC [Suspect]
     Indication: COLITIS
     Route: 048

REACTIONS (3)
  - VISION BLURRED [None]
  - OROPHARYNGEAL PAIN [None]
  - FACE OEDEMA [None]
